FAERS Safety Report 4648660-4 (Version None)
Quarter: 2005Q2

REPORT INFORMATION
  Report Type: 
  Country: None (occurrence: None)
  Receive Date: 20050427
  Receipt Date: 20050415
  Transmission Date: 20051028
  Serious: Yes (Hospitalization)
  Sender: FDA-Public Use
  Company Number: HQWYE092218APR05

PATIENT
  Age: 72 Year
  Sex: Female

DRUGS (3)
  1. CORDARONE [Suspect]
     Dosage: 200 MG 1X PER 1 DAY
     Route: 048
     Dates: start: 19981008
  2. CIPROFLOXACIN [Suspect]
     Dosage: 1.5 G 1X PER 1 DAY
     Route: 048
     Dates: start: 19981012, end: 19981020
  3. GENTAMICIN [Suspect]
     Dosage: 240 MG 1X PER 1 DAY
     Route: 042
     Dates: start: 19980930, end: 19981013

REACTIONS (1)
  - NEUTROPHIL COUNT INCREASED [None]
